FAERS Safety Report 11636790 (Version 2)
Quarter: 2016Q1

REPORT INFORMATION
  Report Type: Spontaneous
  Country: US (occurrence: US)
  Receive Date: 20151016
  Receipt Date: 20160111
  Transmission Date: 20160525
  Serious: No
  Sender: FDA-Public Use
  Company Number: US-GALDERMA-US15007042

PATIENT
  Age: 58 Year
  Sex: Female

DRUGS (4)
  1. SOOLANTRA [Suspect]
     Active Substance: IVERMECTIN
     Indication: ROSACEA
     Dosage: 1%
     Route: 061
     Dates: start: 20150721, end: 20150813
  2. DEXILANT [Concomitant]
     Active Substance: DEXLANSOPRAZOLE
     Route: 048
  3. LEVOTHYROXINE. [Concomitant]
     Active Substance: LEVOTHYROXINE
     Route: 048
  4. LIOTHYRONINE [Concomitant]
     Active Substance: LIOTHYRONINE
     Route: 048

REACTIONS (2)
  - Rosacea [Unknown]
  - Rash papular [Unknown]

NARRATIVE: CASE EVENT DATE: 2015
